FAERS Safety Report 20123861 (Version 1)
Quarter: 2021Q4

REPORT INFORMATION
  Report Type: Report from Study
  Country: CA (occurrence: CA)
  Receive Date: 20211129
  Receipt Date: 20211129
  Transmission Date: 20220303
  Serious: Yes (Other)
  Sender: FDA-Public Use
  Company Number: CA-JNJFOC-20211150295

PATIENT
  Sex: Female

DRUGS (1)
  1. REMICADE [Suspect]
     Active Substance: INFLIXIMAB
     Indication: Crohn^s disease
     Dosage: PATIENT RECEIVED INFUSION ON 27-SEP-2021. ON 22-NOV-2021, CAME FOR INFUSION.
     Route: 042

REACTIONS (2)
  - Mammoplasty [Recovered/Resolved]
  - Burns second degree [Unknown]
